FAERS Safety Report 15495605 (Version 2)
Quarter: 2018Q4

REPORT INFORMATION
  Report Type: Report from Study
  Country: BE (occurrence: BE)
  Receive Date: 20181014
  Receipt Date: 20181016
  Transmission Date: 20190205
  Serious: Yes (Other)
  Sender: FDA-Public Use
  Company Number: BE-BAXTER-2018BAX025743

PATIENT

DRUGS (4)
  1. HEPARIN [Concomitant]
     Active Substance: HEPARIN SODIUM
     Indication: PRODUCT USED FOR UNKNOWN INDICATION
     Dosage: 2500 U
     Route: 042
  2. NITROGLYCERIN. [Concomitant]
     Active Substance: NITROGLYCERIN
     Indication: PRODUCT USED FOR UNKNOWN INDICATION
     Route: 022
  3. SODIUM CHLORIDE_SODIUM CHLORIDE 0.90 %_SOLUTION FOR INFUSION_BAG, PVC [Suspect]
     Active Substance: SODIUM CHLORIDE
     Indication: CARDIAC MONITORING
     Dosage: SALINE AT ROOM TEMPERATURE INFUSED AT A PRESPECIFIED FLOW RATE 20 ML/MIN FOR LEFT CIRCUMFLEX ARTERY
     Route: 022
  4. ADENOSINE. [Concomitant]
     Active Substance: ADENOSINE
     Indication: FRACTIONAL FLOW RESERVE
     Dosage: A BOLUS OF INTRACORONARY ADENOSINE 200 UG FOR THE LCX
     Route: 022

REACTIONS (2)
  - Bradycardia [Recovered/Resolved]
  - Atrioventricular block [Recovered/Resolved]
